FAERS Safety Report 7668595-2 (Version None)
Quarter: 2011Q3

REPORT INFORMATION
  Report Type: 
  Country: None (occurrence: None)
  Receive Date: 20110808
  Receipt Date: 20110808
  Transmission Date: 20111222
  Serious: Yes (Other)
  Sender: FDA-Public Use
  Company Number: None

PATIENT
  Age: 53 Year
  Sex: Female
  Weight: 81.193 kg

DRUGS (1)
  1. PREMPRO [Suspect]
     Indication: HOT FLUSH
     Dosage: 1
     Route: 048
     Dates: start: 20090528, end: 20110429

REACTIONS (2)
  - DRUG INEFFECTIVE [None]
  - COUNTERFEIT DRUG ADMINISTERED [None]
